FAERS Safety Report 8857711 (Version 2)
Quarter: 2012Q4

REPORT INFORMATION
  Report Type: 
  Country: US (occurrence: US)
  Receive Date: 20121024
  Receipt Date: 20121226
  Transmission Date: 20130627
  Serious: Yes (Hospitalization, Disabling, Other)
  Sender: FDA-Public Use
  Company Number: US-009507513-1206USA00828

PATIENT

DRUGS (1)
  1. FOSAMAX [Suspect]
     Indication: OSTEOPOROSIS
     Dosage: 70 mg, qw
     Route: 048
     Dates: start: 200301, end: 200803

REACTIONS (24)
  - Femur fracture [Not Recovered/Not Resolved]
  - Femur fracture [Not Recovered/Not Resolved]
  - Femur fracture [Not Recovered/Not Resolved]
  - Osteoporosis [Not Recovered/Not Resolved]
  - Intramedullary rod insertion [Not Recovered/Not Resolved]
  - Intramedullary rod insertion [Not Recovered/Not Resolved]
  - Intramedullary rod insertion [Not Recovered/Not Resolved]
  - Myocardial infarction [Unknown]
  - Foot fracture [Unknown]
  - Tooth extraction [Unknown]
  - Hypertension [Unknown]
  - Blood cholesterol increased [Unknown]
  - Pain [Unknown]
  - Medical device complication [Unknown]
  - Inflammation [Unknown]
  - Depression [Unknown]
  - Anxiety [Unknown]
  - Osteopenia [Unknown]
  - Contusion [Unknown]
  - Foot fracture [Unknown]
  - Drug abuse [Unknown]
  - Alcohol abuse [Unknown]
  - Arthralgia [Not Recovered/Not Resolved]
  - Back pain [Not Recovered/Not Resolved]
